FAERS Safety Report 8991016 (Version 1)
Quarter: 2012Q4

REPORT INFORMATION
  Report Type: 
  Country: SZ (occurrence: None)
  Receive Date: 20121221
  Receipt Date: 20121221
  Transmission Date: 20130627
  Serious: Yes (Hospitalization)
  Sender: FDA-Public Use
  Company Number: IBUP20120010

PATIENT
  Age: 61 Year
  Sex: Female

DRUGS (3)
  1. IBUPROFEN [Suspect]
     Indication: ANALGESIC THERAPY
     Dates: start: 201206
  2. RIVAROXABAN [Suspect]
     Indication: ANTICOAGULANT THERAPY
     Dates: start: 201206, end: 201206
  3. TRAMADOL (TRAMADOL) (UNKNOWN) (TRAMADOL) [Concomitant]

REACTIONS (3)
  - Extradural haematoma [None]
  - Spontaneous haematoma [None]
  - International normalised ratio decreased [None]
